FAERS Safety Report 9776503 (Version 3)
Quarter: 2014Q1

REPORT INFORMATION
  Report Type: Spontaneous
  Country: JP (occurrence: JP)
  Receive Date: 20131220
  Receipt Date: 20140206
  Transmission Date: 20141002
  Serious: Yes (Hospitalization, Disabling)
  Sender: FDA-Public Use
  Company Number: JP-B.I. PHARMACEUTICALS,INC./RIDGEFIELD-2013-BI-42996NB

PATIENT
  Age: 80 Year
  Sex: Female

DRUGS (4)
  1. PRAZAXA [Suspect]
     Indication: ATRIAL FIBRILLATION
     Dosage: 220 MG
     Route: 048
     Dates: start: 20120419, end: 20130914
  2. MICAMLO / TELMISARTAN AMLODIPINE BESILATE COMBINED DRUG [Concomitant]
     Route: 048
     Dates: end: 20130914
  3. LASIX / FUROSEMIDE [Concomitant]
     Dosage: 10 MG
     Route: 048
     Dates: end: 20130914
  4. LIPITOR / ATORVASTATIN CALCIUM HYDRATE [Concomitant]
     Dosage: 10 MG
     Route: 048
     Dates: end: 20130914

REACTIONS (2)
  - Cerebral infarction [Recovered/Resolved with Sequelae]
  - Drug effect incomplete [Unknown]
